FAERS Safety Report 13196101 (Version 1)
Quarter: 2017Q1

REPORT INFORMATION
  Report Type: Spontaneous
  Country: DE (occurrence: DE)
  Receive Date: 20170208
  Receipt Date: 20170208
  Transmission Date: 20170428
  Serious: Yes (Other)
  Sender: FDA-Public Use
  Company Number: DE-AUROBINDO-AUR-APL-2017-29229

PATIENT
  Age: 43 Year
  Sex: Female

DRUGS (10)
  1. SETRALINE 100MG [Suspect]
     Active Substance: SERTRALINE HYDROCHLORIDE
     Indication: DEPRESSION
     Dosage: 100 MG, DAILY
     Route: 048
     Dates: start: 20151128, end: 20160815
  2. LEVODOPA [Concomitant]
     Active Substance: LEVODOPA
     Indication: RESTLESS LEGS SYNDROME
     Dosage: 25 MG, DAILY
     Route: 048
  3. NAUSEMA [Concomitant]
     Indication: NAUSEA
     Route: 048
  4. ATOSIL                             /00033002/ [Concomitant]
     Active Substance: PROMETHAZINE HYDROCHLORIDE
     Indication: SLEEP DISORDER
     Dosage: UNK
     Route: 048
     Dates: start: 20170111, end: 20170111
  5. AGYRAX                             /00759701/ [Concomitant]
     Indication: NAUSEA
     Dosage: 25 MG, DAILY
     Route: 048
  6. RIOPAN                             /00141701/ [Concomitant]
     Active Substance: MAGALDRATE
     Indication: DYSPEPSIA
     Route: 048
  7. OMEPRAZOL                          /00661201/ [Concomitant]
     Active Substance: OMEPRAZOLE
     Indication: DYSPEPSIA
     Route: 048
  8. FERRLECIT                          /00023541/ [Concomitant]
     Indication: IRON DEFICIENCY
     Route: 042
  9. FOLIO                              /00349401/ [Concomitant]
     Active Substance: CYANOCOBALAMIN\FOLIC ACID
     Indication: PROPHYLAXIS OF NEURAL TUBE DEFECT
     Dosage: 0.4 MG, DAILY
     Route: 048
  10. RENNIE                             /01739201/ [Concomitant]
     Indication: DYSPEPSIA
     Route: 048

REACTIONS (3)
  - Gestational diabetes [Unknown]
  - Vomiting in pregnancy [Unknown]
  - Exposure during pregnancy [Unknown]
